FAERS Safety Report 6731187-3 (Version None)
Quarter: 2010Q2

REPORT INFORMATION
  Report Type: 
  Country: None (occurrence: None)
  Receive Date: 20100518
  Receipt Date: 20100505
  Transmission Date: 20101027
  Serious: Yes (Other)
  Sender: FDA-Public Use
  Company Number: DE-ELI_LILLY_AND_COMPANY-DE201005002003

PATIENT
  Sex: Female

DRUGS (4)
  1. FORTEO [Suspect]
     Indication: OSTEOPOROSIS
     Dosage: UNK, UNKNOWN
     Route: 058
     Dates: start: 20100128, end: 20100301
  2. MORPHINE [Concomitant]
     Dosage: UNK, UNKNOWN
     Route: 062
  3. NOVAMINSULFON [Concomitant]
     Dosage: UNK, UNKNOWN
     Route: 048
  4. CARDIODORON B [Concomitant]
     Dosage: UNK, UNKNOWN
     Route: 065

REACTIONS (3)
  - ARRHYTHMIA [None]
  - DYSPNOEA [None]
  - HYPERHIDROSIS [None]
